FAERS Safety Report 9216468 (Version 1)
Quarter: 2013Q2

REPORT INFORMATION
  Report Type: Spontaneous
  Country: JP (occurrence: JP)
  Receive Date: 20130408
  Receipt Date: 20130408
  Transmission Date: 20140414
  Serious: Yes (Death)
  Sender: FDA-Public Use
  Company Number: JP-SANOFI-AVENTIS-2013SA034897

PATIENT
  Age: 78 Year
  Sex: Male
  Weight: 53.8 kg

DRUGS (6)
  1. TAXOTERE [Suspect]
     Indication: SQUAMOUS CELL CARCINOMA
     Route: 042
     Dates: start: 20120918
  2. ASPIRIN [Concomitant]
  3. CLOPIDOGREL [Concomitant]
  4. AMLODIPINE [Concomitant]
     Route: 048
  5. PRAVASTATIN [Concomitant]
  6. CANDESARTAN [Concomitant]

REACTIONS (1)
  - Interstitial lung disease [Fatal]
